FAERS Safety Report 8879867 (Version 2)
Quarter: 2012Q4

REPORT INFORMATION
  Report Type: 
  Country: HK (occurrence: HK)
  Receive Date: 20121031
  Receipt Date: 20121203
  Transmission Date: 20130627
  Serious: Yes (Hospitalization)
  Sender: FDA-Public Use
  Company Number: HK-ASTRAZENECA-2012SE81396

PATIENT
  Sex: Female

DRUGS (1)
  1. SYMBICORT TBH [Suspect]
     Indication: ASTHMA
     Dosage: 320/9 MCG/DOSE ON UNKNOWN FREQUENCY
     Route: 055

REACTIONS (1)
  - Asthma [Unknown]
